FAERS Safety Report 17826371 (Version 5)
Quarter: 2021Q3

REPORT INFORMATION
  Report Type: Spontaneous
  Country: JP (occurrence: JP)
  Receive Date: 20200526
  Receipt Date: 20210730
  Transmission Date: 20211014
  Serious: Yes (Disabling, Other)
  Sender: FDA-Public Use
  Company Number: JP-LUNDBECK-DKLU3016562

PATIENT
  Age: 5 Month
  Sex: Male
  Weight: 8.5 kg

DRUGS (27)
  1. VIGABATRIN (FOR ORAL SOLUTION) [Suspect]
     Active Substance: VIGABATRIN
     Dosage: 500 MG, BID
     Route: 048
     Dates: start: 20190524, end: 20190526
  2. LAMOTRIGINE. [Concomitant]
     Active Substance: LAMOTRIGINE
     Indication: INFANTILE SPASMS
     Dosage: DAILY DOSAGE: 2 MG
     Route: 048
     Dates: start: 20201211
  3. LEVOCARNITINE. [Concomitant]
     Active Substance: LEVOCARNITINE
     Indication: PRODUCT USED FOR UNKNOWN INDICATION
     Dosage: DAILY DOSAGE: 600 MG
     Route: 048
     Dates: start: 20200911
  4. VIGABATRIN (FOR ORAL SOLUTION) [Suspect]
     Active Substance: VIGABATRIN
     Dosage: 300 MG, BID
     Route: 048
     Dates: start: 20190517, end: 20190520
  5. VIGABATRIN (FOR ORAL SOLUTION) [Suspect]
     Active Substance: VIGABATRIN
     Dosage: 300 MG, BID
     Route: 048
     Dates: start: 20210310, end: 20210312
  6. SODIUM VALPROATE [Concomitant]
     Active Substance: VALPROATE SODIUM
     Dosage: DAILY DOSAGE: 100 MG
     Route: 048
     Dates: start: 20200529, end: 20200726
  7. VIGABATRIN (FOR ORAL SOLUTION) [Suspect]
     Active Substance: VIGABATRIN
     Indication: INFANTILE SPASMS
     Dosage: 500 MG, BID
     Route: 048
     Dates: start: 20200416, end: 20210309
  8. VIGABATRIN (FOR ORAL SOLUTION) [Suspect]
     Active Substance: VIGABATRIN
     Dosage: 200 MG, BID
     Route: 048
     Dates: start: 20190508, end: 20190516
  9. VIGABATRIN (FOR ORAL SOLUTION) [Suspect]
     Active Substance: VIGABATRIN
     Dosage: 400 MG, BID
     Route: 048
     Dates: start: 20191107, end: 20200130
  10. CORTICOTROPIN [Suspect]
     Active Substance: CORTICOTROPIN
     Dosage: UNK
     Route: 030
     Dates: start: 20190425, end: 20190425
  11. ALDACTONE A [Concomitant]
     Active Substance: SPIRONOLACTONE
     Indication: PRODUCT USED FOR UNKNOWN INDICATION
     Dosage: DAILY DOSAGE: 12 MG
     Route: 048
     Dates: start: 20210224, end: 20210406
  12. VIGABATRIN (FOR ORAL SOLUTION) [Suspect]
     Active Substance: VIGABATRIN
     Dosage: 400 MG, BID
     Route: 048
     Dates: start: 20200306, end: 20200415
  13. LAMOTRIGINE. [Concomitant]
     Active Substance: LAMOTRIGINE
     Dosage: DAILY DOSAGE: 6 MG
     Route: 048
     Dates: start: 20210118
  14. VIGABATRIN (FOR ORAL SOLUTION) [Suspect]
     Active Substance: VIGABATRIN
     Dosage: 600 MG, BID
     Route: 048
     Dates: start: 20190527, end: 20191003
  15. VIGABATRIN (FOR ORAL SOLUTION) [Suspect]
     Active Substance: VIGABATRIN
     Dosage: 400 MG, BID
     Route: 048
     Dates: start: 20190521, end: 20190526
  16. SODIUM VALPROATE [Concomitant]
     Active Substance: VALPROATE SODIUM
     Dosage: DAILY DOSAGE: 500 MG
     Route: 048
     Dates: start: 20200911, end: 20201028
  17. VIGABATRIN (FOR ORAL SOLUTION) [Suspect]
     Active Substance: VIGABATRIN
     Dosage: 500 MG, BID
     Route: 048
     Dates: start: 20191004, end: 20191106
  18. VIGABATRIN (FOR ORAL SOLUTION) [Suspect]
     Active Substance: VIGABATRIN
     Dosage: 150 MG, BID
     Route: 048
     Dates: start: 20210313, end: 20210317
  19. SODIUM VALPROATE [Concomitant]
     Active Substance: VALPROATE SODIUM
     Indication: INFANTILE SPASMS
     Dosage: DAILY DOSAGE: 150 MG
     Route: 065
     Dates: end: 20190419
  20. SODIUM VALPROATE [Concomitant]
     Active Substance: VALPROATE SODIUM
     Dosage: DAILY DOSAGE: 200 MG
     Route: 048
     Dates: start: 20210222, end: 20210225
  21. ZONISAMIDE. [Concomitant]
     Active Substance: ZONISAMIDE
     Indication: INFANTILE SPASMS
     Dosage: DAILY DOSE: 20 MG
     Route: 048
     Dates: start: 20190913, end: 20200528
  22. VIGABATRIN (FOR ORAL SOLUTION) [Suspect]
     Active Substance: VIGABATRIN
     Dosage: 300 MG, BID
     Route: 048
     Dates: start: 20200131, end: 20200305
  23. SODIUM VALPROATE [Concomitant]
     Active Substance: VALPROATE SODIUM
     Dosage: DAILY DOSAGE: 300 MG
     Route: 048
     Dates: start: 20200727, end: 20200910
  24. CORTICOTROPIN [Suspect]
     Active Substance: CORTICOTROPIN
     Indication: INFANTILE SPASMS
     Dosage: DAILY DOSAGE: 0.04 MG
     Route: 030
     Dates: start: 20210223, end: 20210328
  25. SODIUM VALPROATE [Concomitant]
     Active Substance: VALPROATE SODIUM
     Dosage: DAILY DOSAGE: 600 MG
     Route: 048
     Dates: start: 20201029, end: 20210217
  26. SODIUM VALPROATE [Concomitant]
     Active Substance: VALPROATE SODIUM
     Dosage: DAILY DOSAGE: 400 MG
     Route: 048
     Dates: start: 20210218, end: 20210221
  27. LAMOTRIGINE. [Concomitant]
     Active Substance: LAMOTRIGINE
     Dosage: DAILY DOSAGE: 4 MG
     Route: 048
     Dates: start: 20210104, end: 202101

REACTIONS (11)
  - Pneumonia aspiration [Recovered/Resolved]
  - Drug ineffective [Unknown]
  - Bronchitis [Not Recovered/Not Resolved]
  - Proteinuria [Not Recovered/Not Resolved]
  - Immunosuppression [Recovered/Resolved]
  - Rhinitis allergic [Not Recovered/Not Resolved]
  - Hypertension [Recovered/Resolved]
  - Hypokalaemia [Recovered/Resolved]
  - Irritability [Recovering/Resolving]
  - Agitation [Recovering/Resolving]
  - Gastrooesophageal reflux disease [Not Recovered/Not Resolved]

NARRATIVE: CASE EVENT DATE: 20190603
